FAERS Safety Report 13887569 (Version 1)
Quarter: 2017Q3

REPORT INFORMATION
  Report Type: Spontaneous
  Country: US (occurrence: US)
  Receive Date: 20170821
  Receipt Date: 20170821
  Transmission Date: 20171127
  Serious: No
  Sender: FDA-Public Use
  Company Number: US-ROCHE-1051999

PATIENT
  Sex: Female

DRUGS (2)
  1. ACTEMRA [Suspect]
     Active Substance: TOCILIZUMAB
     Indication: RHEUMATOID ARTHRITIS
     Dosage: FORM: UNKNOWN
     Route: 042
     Dates: start: 20120229
  2. ASPIRIN. [Concomitant]
     Active Substance: ASPIRIN
     Dosage: FREQUENCY: ONE IN THE MORNING AND ONE IN THE EVENING
     Route: 065

REACTIONS (1)
  - Contusion [Unknown]
